FAERS Safety Report 6168787-8 (Version None)
Quarter: 2009Q2

REPORT INFORMATION
  Report Type: 
  Country: None (occurrence: None)
  Receive Date: 20090424
  Receipt Date: 20090424
  Transmission Date: 20091009
  Serious: Yes (Hospitalization, Other)
  Sender: FDA-Public Use
  Company Number: None

PATIENT
  Age: 50 Year
  Sex: Male
  Weight: 96.8 kg

DRUGS (2)
  1. EPOETIN ALFA,RECOMBINANT [Suspect]
     Indication: ANAEMIA
     Dosage: 40,000 UNITS QWEEK SQ
     Route: 058
     Dates: start: 20090310, end: 20090417
  2. EPOETIN ALFA,RECOMBINANT [Suspect]
     Indication: HEPATITIS C
     Dosage: 40,000 UNITS QWEEK SQ
     Route: 058
     Dates: start: 20090310, end: 20090417

REACTIONS (3)
  - ANAEMIA [None]
  - CONDITION AGGRAVATED [None]
  - SYNCOPE [None]
